FAERS Safety Report 4355217-1 (Version None)
Quarter: 2004Q2

REPORT INFORMATION
  Report Type: 
  Country: None (occurrence: None)
  Receive Date: 20040504
  Receipt Date: 20040420
  Transmission Date: 20050107
  Serious: Yes (Other)
  Sender: FDA-Public Use
  Company Number: 205995

PATIENT
  Age: 50 Year
  Sex: Male

DRUGS (3)
  1. RITUXAN [Suspect]
     Indication: NON-HODGKIN'S LYMPHOMA
     Dosage: 375 MG/M2, 1/WEEK, INTRAVENOUS
     Route: 042
  2. IBUPROFEN [Concomitant]
  3. CHLORPHENIRAMINE MALEATE [Concomitant]

REACTIONS (9)
  - ABNORMAL BEHAVIOUR [None]
  - AGGRESSION [None]
  - INSOMNIA [None]
  - IRRITABILITY [None]
  - LOGORRHOEA [None]
  - MANIA [None]
  - MOOD ALTERED [None]
  - PSYCHOMOTOR HYPERACTIVITY [None]
  - PSYCHOTIC DISORDER [None]
